FAERS Safety Report 6989699-3 (Version None)
Quarter: 2010Q3

REPORT INFORMATION
  Report Type: 
  Country: None (occurrence: None)
  Receive Date: 20100916
  Receipt Date: 20100902
  Transmission Date: 20110219
  Serious: Yes (Life-Threatening)
  Sender: FDA-Public Use
  Company Number: AU-MERCK-1009USA00250

PATIENT
  Age: 80 Year
  Sex: Male

DRUGS (3)
  1. ZOCOR [Suspect]
     Route: 048
  2. AMIODARONE HYDROCHLORIDE [Suspect]
     Route: 065
  3. PRAVASTATIN SODIUM [Suspect]
     Route: 065

REACTIONS (3)
  - DRUG INTERACTION [None]
  - MYOGLOBINAEMIA [None]
  - RENAL FAILURE ACUTE [None]
